FAERS Safety Report 17582889 (Version 2)
Quarter: 2020Q3

REPORT INFORMATION
  Report Type: Other
  Country: US (occurrence: US)
  Receive Date: 20200325
  Receipt Date: 20200925
  Transmission Date: 20201102
  Serious: Yes (Hospitalization)
  Sender: FDA-Public Use
  Company Number: US-VERASTEM-2019-00255

PATIENT

DRUGS (2)
  1. COPIKTRA [Suspect]
     Active Substance: DUVELISIB
     Indication: DIFFUSE LARGE B-CELL LYMPHOMA
     Dosage: 25 MG, BID
     Route: 048
     Dates: start: 20191010, end: 20191028
  2. COPIKTRA [Suspect]
     Active Substance: DUVELISIB
     Dosage: 25 MG, BID (14 DAYS ON/14 DAYS OFF)
     Route: 048
     Dates: start: 20200511, end: 20200515

REACTIONS (3)
  - Malignant neoplasm progression [Not Recovered/Not Resolved]
  - Inappropriate schedule of product administration [Recovered/Resolved]
  - Illness [Unknown]

NARRATIVE: CASE EVENT DATE: 2019
